FAERS Safety Report 10069251 (Version 1)
Quarter: 2014Q2

REPORT INFORMATION
  Report Type: Spontaneous
  Country: US (occurrence: US)
  Receive Date: 20140409
  Receipt Date: 20140409
  Transmission Date: 20141212
  Serious: Yes (Other)
  Sender: FDA-Public Use
  Company Number: US-ASTELLAS-2014US001275

PATIENT
  Sex: Female

DRUGS (1)
  1. PROTOPIC [Suspect]
     Indication: DRY EYE
     Dosage: 2 DROPS, BID
     Route: 047

REACTIONS (2)
  - Off label use [Unknown]
  - Hypersensitivity [Not Recovered/Not Resolved]
